FAERS Safety Report 25967944 (Version 1)
Quarter: 2025Q4

REPORT INFORMATION
  Report Type: Spontaneous
  Country: US (occurrence: US)
  Receive Date: 20251028
  Receipt Date: 20251028
  Transmission Date: 20260117
  Serious: No
  Sender: Kenvue
  Company Number: US-KENVUE-20251002262

PATIENT
  Sex: Female

DRUGS (2)
  1. WOMENS ROGAINE UNSCENTED [Suspect]
     Active Substance: MINOXIDIL
     Indication: Accidental exposure to product
     Dosage: UNK
     Route: 047
  2. WOMENS ROGAINE UNSCENTED [Suspect]
     Active Substance: MINOXIDIL
     Indication: Product used for unknown indication
     Dosage: UNK
     Route: 061

REACTIONS (2)
  - Wrong technique in product usage process [Unknown]
  - Accidental exposure to product [Unknown]
